FAERS Safety Report 7911631-6 (Version None)
Quarter: 2011Q4

REPORT INFORMATION
  Report Type: 
  Country: None (occurrence: None)
  Receive Date: 20111114
  Receipt Date: 20111114
  Transmission Date: 20120403
  Serious: Yes (Other)
  Sender: FDA-Public Use
  Company Number: None

PATIENT
  Age: 55 Year
  Sex: Female
  Weight: 67.131 kg

DRUGS (1)
  1. GABAPENTIN [Suspect]
     Indication: ANXIETY
     Dosage: 300MGS
     Route: 048
     Dates: start: 20111108, end: 20111109

REACTIONS (5)
  - MOOD SWINGS [None]
  - DYSGRAPHIA [None]
  - AMNESIA [None]
  - TACHYPHRENIA [None]
  - CONFUSIONAL STATE [None]
